FAERS Safety Report 17159271 (Version 1)
Quarter: 2019Q4

REPORT INFORMATION
  Report Type: Spontaneous
  Country: US (occurrence: US)
  Receive Date: 20191215
  Receipt Date: 20191215
  Transmission Date: 20200122
  Serious: Yes (Disabling)
  Sender: FDA-Public Use
  Company Number: None

PATIENT
  Age: 51 Year
  Sex: Female
  Weight: 79.2 kg

DRUGS (6)
  1. CIPROFLOXACIN. [Suspect]
     Active Substance: CIPROFLOXACIN
     Indication: URINARY TRACT INFECTION
     Dosage: ?          QUANTITY:1 CAPSULE(S);?
     Route: 048
     Dates: start: 20190808, end: 20190815
  2. CELEBREX [Concomitant]
     Active Substance: CELECOXIB
  3. MULTIVITAMIN [Concomitant]
     Active Substance: VITAMINS
  4. CEPHALEXIN. [Concomitant]
     Active Substance: CEPHALEXIN
  5. SYNTHROID [Concomitant]
     Active Substance: LEVOTHYROXINE SODIUM
  6. ASPIRIN. [Concomitant]
     Active Substance: ASPIRIN

REACTIONS (5)
  - Impaired work ability [None]
  - Tendonitis [None]
  - Sleep disorder [None]
  - Rotator cuff syndrome [None]
  - Mobility decreased [None]

NARRATIVE: CASE EVENT DATE: 20190909
